FAERS Safety Report 7741649-8 (Version None)
Quarter: 2011Q3

REPORT INFORMATION
  Report Type: 
  Country: None (occurrence: None)
  Receive Date: 20110911
  Receipt Date: 20110902
  Transmission Date: 20111222
  Serious: Yes (Death, Hospitalization, Other)
  Sender: FDA-Public Use
  Company Number: US-BRISTOL-MYERS SQUIBB COMPANY-15780935

PATIENT
  Age: 72 Year
  Sex: Male
  Weight: 109 kg

DRUGS (26)
  1. MAGNESIUM HYDROXIDE TAB [Concomitant]
  2. ASPIRIN [Concomitant]
  3. MULTI-VITAMINS [Concomitant]
  4. CELEXA [Concomitant]
  5. COMPAZINE [Concomitant]
  6. LOVENOX [Concomitant]
  7. DULCOLAX [Concomitant]
  8. NEXIUM [Concomitant]
  9. NAPROSYN [Concomitant]
  10. DECADRON [Concomitant]
  11. SEROQUEL [Concomitant]
  12. FAMOTIDINE [Concomitant]
  13. ZANTAC [Concomitant]
  14. OCEAN [Concomitant]
  15. POTASSIUM CHLORIDE [Concomitant]
  16. FLOMAX [Concomitant]
  17. ZOCOR [Concomitant]
  18. TOPROL-XL [Concomitant]
  19. IPILIMUMAB [Suspect]
     Indication: MALIGNANT MELANOMA
     Dosage: LAST DOSE ON 09MAY2011 NO OF COURSES: 2 10MG/KGIV(INDUC THERAPY) 10MG/KGIV(MAIN THERAPY) CY:21D
     Route: 042
     Dates: start: 20110418
  20. CALCIUM CARBONATE [Concomitant]
  21. TYLENOL-500 [Concomitant]
  22. MEGACE [Concomitant]
  23. ZOFRAN [Concomitant]
  24. LASIX [Concomitant]
  25. GLUCOSAMINE [Concomitant]
  26. DIFLUCAN [Concomitant]

REACTIONS (16)
  - DEHYDRATION [None]
  - MUSCULAR WEAKNESS [None]
  - GAIT DISTURBANCE [None]
  - DYSPNOEA [None]
  - FLATULENCE [None]
  - DYSPHAGIA [None]
  - SEPSIS [None]
  - HOT FLUSH [None]
  - COLITIS [None]
  - DECREASED APPETITE [None]
  - LARGE INTESTINE PERFORATION [None]
  - LYMPHOCYTE COUNT DECREASED [None]
  - HYPOALBUMINAEMIA [None]
  - ARTHRALGIA [None]
  - OEDEMA PERIPHERAL [None]
  - FATIGUE [None]
